FAERS Safety Report 10036081 (Version 2)
Quarter: 2014Q1

REPORT INFORMATION
  Report Type: Spontaneous
  Country: GB (occurrence: GB)
  Receive Date: 20140325
  Receipt Date: 20140328
  Transmission Date: 20141002
  Serious: Yes (Other)
  Sender: FDA-Public Use
  Company Number: GB-PFIZER INC-2014081470

PATIENT
  Age: 70 Year
  Sex: Male

DRUGS (2)
  1. INLYTA [Suspect]
     Dosage: 5 MG, 2X/DAY
  2. INLYTA [Suspect]
     Dosage: 10 MG, UNK

REACTIONS (2)
  - Urinary retention [Recovered/Resolved]
  - Prostatomegaly [Recovered/Resolved]
